FAERS Safety Report 16799675 (Version 1)
Quarter: 2019Q3

REPORT INFORMATION
  Report Type: Spontaneous
  Country: US (occurrence: US)
  Receive Date: 20190912
  Receipt Date: 20190912
  Transmission Date: 20191005
  Serious: No
  Sender: FDA-Public Use
  Company Number: US-TAKEDA-2019TUS051791

PATIENT
  Age: 29 Year
  Sex: Female

DRUGS (1)
  1. ENTYVIO [Suspect]
     Active Substance: VEDOLIZUMAB
     Indication: CROHN^S DISEASE
     Dosage: UNK
     Route: 042
     Dates: start: 201907, end: 201907

REACTIONS (5)
  - Contusion [Unknown]
  - Crohn^s disease [Unknown]
  - Vomiting [Unknown]
  - Arthralgia [Unknown]
  - Oedema [Unknown]
